FAERS Safety Report 15642219 (Version 3)
Quarter: 2018Q4

REPORT INFORMATION
  Report Type: Spontaneous
  Country: JP (occurrence: JP)
  Receive Date: 20181121
  Receipt Date: 20181203
  Transmission Date: 20190205
  Serious: Yes (Death, Other)
  Sender: FDA-Public Use
  Company Number: JP-ROCHE-2217229

PATIENT
  Age: 71 Year
  Sex: Male

DRUGS (3)
  1. XELODA [Suspect]
     Active Substance: CAPECITABINE
     Indication: MALIGNANT ANORECTAL NEOPLASM
     Dosage: DOSAGE IS UNCERTAIN.
     Route: 048
  2. OXALIPLATIN. [Concomitant]
     Active Substance: OXALIPLATIN
     Indication: MALIGNANT ANORECTAL NEOPLASM
     Dosage: DOSAGE IS UNCERTAIN.
     Route: 041
  3. AVASTIN [Suspect]
     Active Substance: BEVACIZUMAB
     Indication: MALIGNANT ANORECTAL NEOPLASM
     Dosage: DOSAGE IS UNCERTAIN.
     Route: 041

REACTIONS (8)
  - Off label use [Unknown]
  - Infection [Unknown]
  - Extradural abscess [Unknown]
  - Intentional product use issue [Unknown]
  - Sepsis [Unknown]
  - Acute respiratory distress syndrome [Fatal]
  - Anal abscess [Unknown]
  - Muscle abscess [Unknown]
